FAERS Safety Report 6393111-5 (Version None)
Quarter: 2009Q4

REPORT INFORMATION
  Report Type: 
  Country: None (occurrence: None)
  Receive Date: 20091008
  Receipt Date: 20091001
  Transmission Date: 20100525
  Serious: No
  Sender: FDA-Public Use
  Company Number: US-B.I. PHARMACEUTICALS,INC./RIDGEFIELD-2009-BP-11525BP

PATIENT
  Sex: Female

DRUGS (6)
  1. SPIRIVA [Suspect]
     Indication: CHRONIC OBSTRUCTIVE PULMONARY DISEASE
     Dosage: 18 MCG
     Route: 055
     Dates: start: 20090601
  2. LEVOTHROID [Concomitant]
     Indication: HYPOTHYROIDISM
  3. FAMATODINE [Concomitant]
     Indication: COUGH
  4. LISINOPRIL [Concomitant]
     Indication: HYPERTENSION
  5. CELEXA [Concomitant]
     Indication: DEPRESSION
  6. PREMPRO [Concomitant]
     Indication: HORMONE REPLACEMENT THERAPY

REACTIONS (2)
  - DIZZINESS [None]
  - VITAMIN B12 DECREASED [None]
